FAERS Safety Report 4764515-9 (Version None)
Quarter: 2005Q3

REPORT INFORMATION
  Report Type: 
  Country: None (occurrence: None)
  Receive Date: 20050907
  Receipt Date: 20050830
  Transmission Date: 20060218
  Serious: Yes (Other)
  Sender: FDA-Public Use
  Company Number: 2005121281

PATIENT
  Age: 42 Year
  Sex: Male
  Weight: 80 kg

DRUGS (2)
  1. LIPITOR [Suspect]
     Indication: BLOOD CHOLESTEROL INCREASED
     Dosage: (20 MG), ORAL
     Route: 048
     Dates: start: 19970101, end: 20050613
  2. THYROXINE (LEVOTHYROXINE) [Concomitant]

REACTIONS (1)
  - MEMORY IMPAIRMENT [None]
